FAERS Safety Report 9758529 (Version 1)
Quarter: 2013Q4

REPORT INFORMATION
  Report Type: Spontaneous
  Country: US (occurrence: None)
  Receive Date: 20131216
  Receipt Date: 20131216
  Transmission Date: 20140711
  Serious: No
  Sender: FDA-Public Use
  Company Number: CABO-13002577

PATIENT
  Age: 63 Year
  Sex: Male

DRUGS (1)
  1. COMETRIQ (CABOZANTINIB) [Suspect]
     Indication: PROSTATE CANCER
     Dosage: 100 MG, QD, ORAL

REACTIONS (5)
  - Nail discolouration [None]
  - Muscular weakness [None]
  - Hypoaesthesia [None]
  - Paraesthesia [None]
  - Paraesthesia [None]
